FAERS Safety Report 18044087 (Version 3)
Quarter: 2021Q3

REPORT INFORMATION
  Report Type: Spontaneous
  Country: US (occurrence: US)
  Receive Date: 20200720
  Receipt Date: 20210812
  Transmission Date: 20211014
  Serious: No
  Sender: FDA-Public Use
  Company Number: US-SA-2020SA185377

PATIENT
  Age: 67 Year
  Sex: Female
  Weight: 74.83 kg

DRUGS (20)
  1. PRAVASTATIN SODIUM. [Concomitant]
     Active Substance: PRAVASTATIN SODIUM
  2. PROBIOTIC ACIDOPHILUS [LACTOBACILLUS ACIDOPHILUS] [Concomitant]
  3. SYSTANE (HYPROMELLOSE 2910 (4000 MPA.S)) [Concomitant]
     Active Substance: HYPROMELLOSE 2910 (4000 MPA.S)
  4. NAPROXEN. [Concomitant]
     Active Substance: NAPROXEN
  5. PRAVASTATIN SODIUM. [Concomitant]
     Active Substance: PRAVASTATIN SODIUM
     Dosage: 250MG
  6. MELATONIN [Concomitant]
     Active Substance: MELATONIN
     Dosage: 66 MG
  7. MULTIVITAMINS [VITAMINS NOS] [Concomitant]
     Active Substance: VITAMINS
  8. NEOMYCIN AND POLYMYXIN B SULFATES AND DEXAMETHASONE [Concomitant]
     Active Substance: DEXAMETHASONE\NEOMYCIN SULFATE\POLYMYXIN B SULFATE
  9. VITAMIN C [Concomitant]
     Active Substance: ASCORBIC ACID
  10. DIMETAPP [ASPARTAME;BROMPHENIRAMINE MALEATE;PHENYLALANINE;PHENYLPROPAN [Concomitant]
     Dosage: UNK
  11. VIT D [Concomitant]
     Active Substance: VITAMIN D NOS
  12. ERYTHROMYCIN. [Concomitant]
     Active Substance: ERYTHROMYCIN
  13. BENADRYL [Concomitant]
     Active Substance: DIPHENHYDRAMINE HYDROCHLORIDE
     Dosage: UNK
  14. DUPIXENT [Suspect]
     Active Substance: DUPILUMAB
     Indication: DERMATITIS ALLERGIC
  15. NAPROXEN. [Concomitant]
     Active Substance: NAPROXEN
     Dosage: 250MG
  16. ALLEGRA ALLERGY [Concomitant]
     Active Substance: FEXOFENADINE HYDROCHLORIDE
     Dosage: UNK
  17. ZINC. [Concomitant]
     Active Substance: ZINC
     Dosage: 66 MG
  18. DUPIXENT [Suspect]
     Active Substance: DUPILUMAB
     Indication: DERMATITIS ATOPIC
     Dosage: 300 MG, QOW
     Route: 058
     Dates: start: 201907
  19. BENADRYL [Concomitant]
     Active Substance: DIPHENHYDRAMINE HYDROCHLORIDE
     Dosage: 180MG
  20. COVID?19 VACCINE [Concomitant]
     Indication: COVID-19 IMMUNISATION
     Dosage: 1MG

REACTIONS (13)
  - Visual impairment [Recovered/Resolved]
  - Dermatitis atopic [Not Recovered/Not Resolved]
  - Night blindness [Unknown]
  - Dry eye [Recovering/Resolving]
  - Hyperhidrosis [Recovering/Resolving]
  - Vision blurred [Unknown]
  - Rash pruritic [Recovering/Resolving]
  - Skin erosion [Recovering/Resolving]
  - Pruritus [Unknown]
  - Skin irritation [Unknown]
  - Initial insomnia [Unknown]
  - Eyelid irritation [Recovering/Resolving]
  - Eye pruritus [Unknown]

NARRATIVE: CASE EVENT DATE: 2020
